FAERS Safety Report 4438669-8 (Version None)
Quarter: 2004Q3

REPORT INFORMATION
  Report Type: 
  Country: None (occurrence: None)
  Receive Date: 20040827
  Receipt Date: 20040819
  Transmission Date: 20050211
  Serious: Yes (Life-Threatening)
  Sender: FDA-Public Use
  Company Number: 2004AP04368

PATIENT
  Sex: Male

DRUGS (2)
  1. NAROPIN [Suspect]
     Indication: ANAESTHESIA
  2. NAROPIN [Suspect]
     Indication: SHOULDER OPERATION

REACTIONS (3)
  - ARRHYTHMIA [None]
  - DRUG TOXICITY [None]
  - MALAISE [None]
